FAERS Safety Report 7182916-9 (Version None)
Quarter: 2010Q4

REPORT INFORMATION
  Report Type: 
  Country: None (occurrence: None)
  Receive Date: 20101209
  Receipt Date: 20101117
  Transmission Date: 20110411
  Serious: No
  Sender: FDA-Public Use
  Company Number: TIF2010A00135

PATIENT
  Age: 57 Year
  Sex: Female

DRUGS (2)
  1. LANSOPRAZOLE [Suspect]
     Indication: GASTROOESOPHAGEAL REFLUX DISEASE
     Dosage: 15 MG (15 MG, 1 IN 1 D) ORAL
     Route: 048
     Dates: start: 20080101, end: 20090101
  2. RAMIPRIL [Concomitant]

REACTIONS (3)
  - DRY MOUTH [None]
  - URTICARIA [None]
  - VISION BLURRED [None]
